FAERS Safety Report 7069756-6 (Version None)
Quarter: 2010Q4

REPORT INFORMATION
  Report Type: 
  Country: None (occurrence: None)
  Receive Date: 20101028
  Receipt Date: 20100611
  Transmission Date: 20110411
  Serious: No
  Sender: FDA-Public Use
  Company Number: US-WYE-H15650310

PATIENT
  Sex: Female
  Weight: 68.1 kg

DRUGS (2)
  1. EFFEXOR [Suspect]
     Indication: ANXIETY
     Dates: start: 20100301, end: 20100501
  2. EFFEXOR [Suspect]
     Indication: DEPRESSION
     Dosage: TAPERING OFF CURRENTLY ON 75 MG DAILY
     Dates: start: 20100501

REACTIONS (1)
  - URTICARIA [None]
